FAERS Safety Report 6452925-3 (Version None)
Quarter: 2009Q4

REPORT INFORMATION
  Report Type: 
  Country: None (occurrence: None)
  Receive Date: 20091124
  Receipt Date: 20091117
  Transmission Date: 20100525
  Serious: No
  Sender: FDA-Public Use
  Company Number: JP-WYE-H11865009

PATIENT
  Sex: Male

DRUGS (4)
  1. ZOSYN [Suspect]
     Indication: PNEUMONIA
     Route: 041
     Dates: start: 20091016, end: 20091020
  2. AMINO ACIDS NOS/CARBOHYDRATES NOS/ELECTROLYTES NOS [Concomitant]
     Route: 041
     Dates: start: 20091016
  3. VITAMINS [Concomitant]
     Route: 041
     Dates: start: 20091016
  4. FUROSEMIDE [Concomitant]
     Route: 041
     Dates: start: 20091016

REACTIONS (1)
  - DYSKINESIA [None]
